FAERS Safety Report 5339786-0 (Version None)
Quarter: 2007Q2

REPORT INFORMATION
  Report Type: 
  Country: None (occurrence: None)
  Receive Date: 20070404
  Receipt Date: 20060828
  Transmission Date: 20071010
  Serious: Yes (Other)
  Sender: FDA-Public Use
  Company Number: 2006104983

PATIENT
  Age: 35 Year
  Sex: Female

DRUGS (5)
  1. GEODON [Suspect]
     Indication: ANXIETY
     Dosage: 80 MG (80 MG,QD:EVERYDAY0
     Dates: end: 20060816
  2. GEODON [Suspect]
     Indication: DRUG USE FOR UNKNOWN INDICATION
     Dosage: 80 MG (80 MG,QD:EVERYDAY0
     Dates: end: 20060816
  3. XANAX [Concomitant]
  4. ALL OTHER THERAPEUTIC PRODUCTS (ALL OTHER THERAPEUTIC PRODUCTS) [Concomitant]
  5. VALTRAX (DIAZEPAM, ISOPROPAMIDE IODIDE) [Concomitant]

REACTIONS (1)
  - TARDIVE DYSKINESIA [None]
